FAERS Safety Report 9988777 (Version 1)
Quarter: 2013Q4

REPORT INFORMATION
  Report Type: Spontaneous
  Country: GB (occurrence: None)
  Receive Date: 20131009
  Receipt Date: 20131009
  Transmission Date: 20140711
  Serious: Yes (Hospitalization, Other)
  Sender: FDA-Public Use
  Company Number: AUR-APL-2012-05208

PATIENT
  Age: 50 Year
  Sex: Female
  Weight: 69 kg

DRUGS (9)
  1. LAMOTRIGINE (LAMOTRIGINE) [Suspect]
     Indication: EPILEPSY
     Route: 048
     Dates: start: 20120621, end: 20120912
  2. ADCAL [Concomitant]
  3. AMITRIPTYLINE (AMITRIPTYLINE) [Concomitant]
  4. AZATHIOPRINE (AZATHIOPRINE) [Concomitant]
  5. CLOPIDOGREL (CLOPIDOGREL) [Concomitant]
  6. GABAPENTIN (GABAPENTIN) [Concomitant]
  7. MST CONTINUS (MORPHINE SULFATE) [Concomitant]
  8. SOLIFENACIN (SOLIFENACIN) [Concomitant]
  9. IMMUNOTHERAPY TREATMENT [Concomitant]

REACTIONS (5)
  - Aplasia pure red cell [None]
  - Haemoglobin decreased [None]
  - Hypogammaglobulinaemia [None]
  - Blood immunoglobulin G decreased [None]
  - Malaise [None]
